FAERS Safety Report 20911719 (Version 1)
Quarter: 2022Q2

REPORT INFORMATION
  Report Type: Spontaneous
  Country: SE (occurrence: SE)
  Receive Date: 20220603
  Receipt Date: 20220603
  Transmission Date: 20220721
  Serious: Yes (Other)
  Sender: FDA-Public Use
  Company Number: None

PATIENT
  Age: 62 Year
  Sex: Female

DRUGS (5)
  1. OLANZAPINE [Suspect]
     Active Substance: OLANZAPINE
     Indication: Bipolar disorder
     Dosage: 10 MG 2 TABLETS OVERNIGHT UNTIL FURTHER NOTICE,OLANZAPINE ACTAVIS 10 MG FILM-COATED TABLET,UNIT DOSE
     Route: 048
     Dates: start: 20201018
  2. OLANZAPINE [Suspect]
     Active Substance: OLANZAPINE
     Indication: Anxiety
  3. ZOPIKLON PILUM [Concomitant]
     Dosage: 7.5 MG 1 TABLET OVERNIGHT IF NEEDED UNTIL FURTHER NOTICE,ZOPICLONE PILUM 7.5 MG FILM-COATED TABLET
     Route: 048
  4. TOLTERODINE [Concomitant]
     Active Substance: TOLTERODINE
     Dosage: 4 MG 1 PROLONGED-RELEASE CAPSULE X 1 UNTIL FURTHER NOTICE,TOLTERODINE SANDOZ 4 MG PROLONGED-RELEASE
     Route: 048
  5. OLANZAPIN STADA [Concomitant]
     Dosage: 5 MG 1 TABLET OVERNIGHT UNTIL FURTHER NOTICE,OLANZAPINE STADA 5 MG FILM-COATED TABLET
     Route: 048

REACTIONS (5)
  - Muscle injury [Unknown]
  - Neuroleptic malignant syndrome [Unknown]
  - Confusional state [Unknown]
  - Alanine aminotransferase increased [Unknown]
  - Aspartate aminotransferase increased [Unknown]

NARRATIVE: CASE EVENT DATE: 20210701
